FAERS Safety Report 6540613-4 (Version None)
Quarter: 2010Q1

REPORT INFORMATION
  Report Type: 
  Country: None (occurrence: None)
  Receive Date: 20100112
  Receipt Date: 20091028
  Transmission Date: 20100710
  Serious: No
  Sender: FDA-Public Use
  Company Number: 2009-00695

PATIENT
  Age: 70 Year
  Sex: Male
  Weight: 81.6475 kg

DRUGS (9)
  1. COLD REMEDY CHEWABLES [Suspect]
     Dosage: QID - 1 DAY
     Dates: start: 20091027, end: 20091028
  2. CAPTOPRIL [Concomitant]
  3. LASIX [Concomitant]
  4. TAMBOCOR [Concomitant]
  5. NORVASC [Concomitant]
  6. LORAZEPAM [Concomitant]
  7. LEXAPRO [Concomitant]
  8. DETROL [Concomitant]
  9. PRAVASTATIN [Concomitant]

REACTIONS (1)
  - AGEUSIA [None]
